FAERS Safety Report 8264144-9 (Version None)
Quarter: 2012Q2

REPORT INFORMATION
  Report Type: 
  Country: None (occurrence: None)
  Receive Date: 20120406
  Receipt Date: 20120328
  Transmission Date: 20120825
  Serious: Yes (Death, Life-Threatening, Hospitalization, Disabling)
  Sender: FDA-Public Use
  Company Number: US-AMGEN-USASP2012020101

PATIENT
  Age: 73 Year
  Sex: Male
  Weight: 113.38 kg

DRUGS (2)
  1. ENBREL [Suspect]
     Indication: RHEUMATOID ARTHRITIS
     Dosage: 25 MG, 2 TIMES/WK
     Route: 058
     Dates: start: 20050401, end: 20080201
  2. METHOTREXATE [Concomitant]
     Dosage: UNK
     Dates: start: 20050201, end: 20110401

REACTIONS (2)
  - PANCREATIC CARCINOMA METASTATIC [None]
  - BONE NEOPLASM MALIGNANT [None]
